FAERS Safety Report 10235824 (Version 1)
Quarter: 2014Q2

REPORT INFORMATION
  Report Type: Spontaneous
  Country: US (occurrence: US)
  Receive Date: 20140613
  Receipt Date: 20140613
  Transmission Date: 20141212
  Serious: Yes (Hospitalization)
  Sender: FDA-Public Use
  Company Number: US-SA-2014SA076122

PATIENT
  Age: 79 Year
  Sex: Male

DRUGS (1)
  1. FUROSEMIDE [Suspect]
     Indication: CARDIAC FAILURE CHRONIC
     Route: 048

REACTIONS (4)
  - Dehydration [Unknown]
  - Hyperhidrosis [Unknown]
  - Confusional state [Recovering/Resolving]
  - Hypotension [Recovering/Resolving]
